FAERS Safety Report 5787258-1 (Version None)
Quarter: 2008Q2

REPORT INFORMATION
  Report Type: 
  Country: None (occurrence: None)
  Receive Date: 20080623
  Receipt Date: 20080623
  Transmission Date: 20081010
  Serious: Yes (Disabling)
  Sender: FDA-Public Use
  Company Number: None

PATIENT
  Age: 46 Year
  Sex: Female
  Weight: 104.3273 kg

DRUGS (1)
  1. BONIVA [Suspect]
     Indication: OSTEOPOROSIS
     Dosage: 150MG MONTHLY PO LESS THAN ONE MONTH
     Route: 048
     Dates: start: 20080615, end: 20080621

REACTIONS (8)
  - ABDOMINAL DISTENSION [None]
  - ARTHRALGIA [None]
  - COUGH [None]
  - GAIT DISTURBANCE [None]
  - HEADACHE [None]
  - INSOMNIA [None]
  - PHARYNGOLARYNGEAL PAIN [None]
  - UPPER RESPIRATORY TRACT CONGESTION [None]
